FAERS Safety Report 5451542-1 (Version None)
Quarter: 2007Q3

REPORT INFORMATION
  Report Type: 
  Country: None (occurrence: None)
  Receive Date: 20070913
  Receipt Date: 20070903
  Transmission Date: 20080115
  Serious: Yes (Hospitalization)
  Sender: FDA-Public Use
  Company Number: JP-SANOFI-SYNTHELABO-F01200701097

PATIENT
  Sex: Male

DRUGS (11)
  1. RESTAMIN [Concomitant]
     Route: 065
     Dates: start: 20070306, end: 20070306
  2. INFLUENZA VACCINE [Concomitant]
     Route: 065
     Dates: start: 20061121, end: 20061121
  3. HEPARIN SODIUM [Concomitant]
     Route: 065
     Dates: start: 20060831, end: 20070712
  4. DECADRON [Concomitant]
     Route: 065
     Dates: start: 20060929, end: 20070711
  5. KYTRIL [Concomitant]
     Route: 065
     Dates: start: 20060929, end: 20070711
  6. FOLINIC ACID [Concomitant]
     Route: 042
     Dates: start: 20070101, end: 20070101
  7. ISOVORIN [Suspect]
     Route: 042
     Dates: start: 20060417, end: 20070328
  8. FLUOROURACIL [Suspect]
     Route: 042
     Dates: start: 20060829, end: 20070711
  9. MIYA BM [Concomitant]
     Route: 065
     Dates: start: 20061017, end: 20070212
  10. ELPLAT [Suspect]
     Indication: RECTAL CANCER
     Route: 042
     Dates: start: 20060829, end: 20070327
  11. BEVACIZUMAB [Suspect]
     Route: 042
     Dates: start: 20060829, end: 20070710

REACTIONS (2)
  - APPENDICITIS [None]
  - APPENDICITIS PERFORATED [None]
